FAERS Safety Report 4370350-6 (Version None)
Quarter: 2004Q2

REPORT INFORMATION
  Report Type: 
  Country: None (occurrence: None)
  Receive Date: 20040603
  Receipt Date: 20040213
  Transmission Date: 20050107
  Serious: No
  Sender: FDA-Public Use
  Company Number: US-BRISTOL-MYERS SQUIBB COMPANY-12507182

PATIENT
  Age: 50 Year
  Sex: Male
  Weight: 92 kg

DRUGS (9)
  1. ABILIFY [Suspect]
     Indication: DEPRESSION
     Route: 048
     Dates: start: 20040211
  2. SERZONE [Suspect]
     Indication: DEPRESSION
     Dosage: CONSUMER STARTED ON 100 MG AND GRADUATED TO 300 MER THE SAMPLE PACKET DIRECTIONS.
     Route: 048
     Dates: start: 20040127
  3. AMAREL [Concomitant]
     Indication: DIABETES MELLITUS
     Dates: start: 20040202
  4. ZANTAC [Concomitant]
  5. VICODIN [Concomitant]
  6. SOMA [Concomitant]
  7. ELAVIL [Concomitant]
  8. ASPIRIN [Concomitant]
  9. BACITRACIN TOPICAL OINTMENT [Concomitant]

REACTIONS (4)
  - BLOOD GLUCOSE INCREASED [None]
  - DRY MOUTH [None]
  - FATIGUE [None]
  - INSOMNIA [None]
